FAERS Safety Report 24914612 (Version 2)
Quarter: 2025Q3

REPORT INFORMATION
  Report Type: Report from Study
  Country: US (occurrence: US)
  Receive Date: 20250203
  Receipt Date: 20250809
  Transmission Date: 20251021
  Serious: Yes (Hospitalization)
  Sender: ALEXION PHARMACEUTICALS
  Company Number: US-ASTRAZENECA-202412USA026251US

PATIENT
  Sex: Female

DRUGS (1)
  1. OSIMERTINIB [Suspect]
     Active Substance: OSIMERTINIB
     Indication: Lung carcinoma cell type unspecified stage 0
     Dosage: 80 MILLIGRAM, QD
     Dates: start: 202412

REACTIONS (6)
  - Arthralgia [Unknown]
  - Ligament injury [Unknown]
  - Rash [Unknown]
  - Genital burning sensation [Recovering/Resolving]
  - Skin exfoliation [Unknown]
  - Dry eye [Unknown]
